FAERS Safety Report 21926148 (Version 1)
Quarter: 2023Q1

REPORT INFORMATION
  Report Type: Spontaneous
  Country: US (occurrence: US)
  Receive Date: 20230130
  Receipt Date: 20230130
  Transmission Date: 20230417
  Serious: No
  Sender: FDA-Public Use
  Company Number: US-GLAXOSMITHKLINE-USCH2023003791

PATIENT

DRUGS (1)
  1. ADVIL LIQUI-GELS [Suspect]
     Active Substance: IBUPROFEN
     Indication: Product used for unknown indication
     Dosage: UNK
     Dates: start: 20230123, end: 20230123

REACTIONS (3)
  - Oral discomfort [Unknown]
  - Hypoaesthesia oral [Recovered/Resolved]
  - Lip disorder [Unknown]

NARRATIVE: CASE EVENT DATE: 20230101
